FAERS Safety Report 5283235-8 (Version None)
Quarter: 2007Q2

REPORT INFORMATION
  Report Type: 
  Country: None (occurrence: None)
  Receive Date: 20070402
  Receipt Date: 20070323
  Transmission Date: 20071010
  Serious: Yes (Other)
  Sender: FDA-Public Use
  Company Number: FR-GLAXOSMITHKLINE-B0464108A

PATIENT
  Age: 22 Year
  Sex: Female

DRUGS (3)
  1. SERETIDE DISKUS [Suspect]
     Indication: ASTHMA
     Dosage: 1PUFF TWICE PER DAY
     Route: 055
  2. CORTICOIDS [Suspect]
     Indication: ASTHMA
     Route: 048
  3. NASONEX [Suspect]
     Route: 045

REACTIONS (5)
  - ADRENAL INSUFFICIENCY [None]
  - ASTHENIA [None]
  - BLOOD CORTISOL DECREASED [None]
  - HIRSUTISM [None]
  - HYPERADRENOCORTICISM [None]
